FAERS Safety Report 21501192 (Version 1)
Quarter: 2022Q4

REPORT INFORMATION
  Report Type: Spontaneous
  Country: US (occurrence: US)
  Receive Date: 20221025
  Receipt Date: 20221025
  Transmission Date: 20230112
  Serious: No
  Sender: FDA-Public Use
  Company Number: US-drreddys-SPO/USA/22/0155557

PATIENT
  Age: 17 Year

DRUGS (2)
  1. ZENATANE [Suspect]
     Active Substance: ISOTRETINOIN
     Indication: Acne
     Dosage: RMA ISSUE DATE: 10 AUGUST 2022 07:17:30 PM; 13 JULY 2022 04:03:51 PM; 15 JUNE 2022 05:20:48 PM
  2. ZENATANE [Suspect]
     Active Substance: ISOTRETINOIN
     Dosage: RMA ISSUE DATE: 12 MAY 2022 03:59:07 PM; 12 MAY 2022 03:53:26 PM

REACTIONS (1)
  - Adverse drug reaction [Unknown]
